FAERS Safety Report 6015767-9 (Version None)
Quarter: 2008Q4

REPORT INFORMATION
  Report Type: 
  Country: None (occurrence: None)
  Receive Date: 20081222
  Receipt Date: 20080721
  Transmission Date: 20090506
  Serious: No
  Sender: FDA-Public Use
  Company Number: US-BAYER-200813126BCC

PATIENT
  Age: 85 Year
  Sex: Female
  Weight: 66 kg

DRUGS (1)
  1. ALEVE [Suspect]
     Indication: ARTHRITIS
     Route: 048

REACTIONS (1)
  - ARTHRALGIA [None]
